FAERS Safety Report 5494790-7 (Version None)
Quarter: 2007Q4

REPORT INFORMATION
  Report Type: 
  Country: None (occurrence: None)
  Receive Date: 20071015
  Receipt Date: 20070809
  Transmission Date: 20080405
  Serious: No
  Sender: FDA-Public Use
  Company Number: 2007SP002798

PATIENT
  Age: 61 Year
  Sex: Female
  Weight: 52.6173 kg

DRUGS (5)
  1. LUNESTA [Suspect]
     Indication: INSOMNIA
     Dosage: 3 MG;HS;ORAL : 1 MG;PRN;ORAL
     Route: 048
     Dates: start: 20050101
  2. NABUMETONE [Concomitant]
  3. GABAPENTIN [Concomitant]
  4. NEXIUM [Concomitant]
  5. LEVOTHROID [Concomitant]

REACTIONS (1)
  - MIDDLE INSOMNIA [None]
